FAERS Safety Report 6148497-3 (Version None)
Quarter: 2009Q2

REPORT INFORMATION
  Report Type: 
  Country: None (occurrence: None)
  Receive Date: 20090408
  Receipt Date: 20090406
  Transmission Date: 20091009
  Serious: Yes (Death)
  Sender: FDA-Public Use
  Company Number: PHHY2009JP12159

PATIENT
  Age: 78 Year
  Sex: Female

DRUGS (2)
  1. COMTAN [Suspect]
     Dosage: UNK
     Route: 048
  2. LEVODOPA BENSERAZIDE HYDROCHLO [Concomitant]

REACTIONS (1)
  - INTESTINAL OBSTRUCTION [None]
